FAERS Safety Report 19862841 (Version 2)
Quarter: 2024Q2

REPORT INFORMATION
  Report Type: Spontaneous
  Country: IT (occurrence: IT)
  Receive Date: 20210921
  Receipt Date: 20240419
  Transmission Date: 20240715
  Serious: Yes (Other)
  Sender: FDA-Public Use
  Company Number: IT-MLMSERVICE-20210901-3080095-1

PATIENT
  Age: 36 Year
  Sex: Female

DRUGS (3)
  1. DOCETAXEL [Suspect]
     Active Substance: DOCETAXEL\DOCETAXEL ANHYDROUS
     Indication: Triple positive breast cancer
     Dosage: 100 MG/M2, CYCLIC EVERY THREE WEEKS FOR FOUR CYCLES
     Dates: start: 201201, end: 201204
  2. DOCETAXEL [Suspect]
     Active Substance: DOCETAXEL\DOCETAXEL ANHYDROUS
     Dosage: RESUMED AT 25% REDUCED DOSE
  3. TRASTUZUMAB [Suspect]
     Active Substance: TRASTUZUMAB
     Indication: Triple positive breast cancer
     Dosage: 8 MG/KG LOADING DOSE, FOLLOWED BY 6 MG/KG EVERY THREE WEEKS FOR FOUR CYCLES
     Dates: start: 201201, end: 201204

REACTIONS (2)
  - Hypertransaminasaemia [Recovering/Resolving]
  - Hepatotoxicity [Recovering/Resolving]

NARRATIVE: CASE EVENT DATE: 20120101
